FAERS Safety Report 24228889 (Version 1)
Quarter: 2024Q3

REPORT INFORMATION
  Report Type: Spontaneous
  Country: FR (occurrence: FR)
  Receive Date: 20240820
  Receipt Date: 20240820
  Transmission Date: 20241017
  Serious: Yes (Hospitalization)
  Sender: MYLAN
  Company Number: None

PATIENT
  Age: 69 Year
  Sex: Female
  Weight: 87 kg

DRUGS (20)
  1. ONDANSETRON [Suspect]
     Active Substance: ONDANSETRON
     Indication: Prophylaxis of nausea and vomiting
     Dosage: 8 MILLIGRAM, QD
     Route: 042
     Dates: start: 20240524, end: 20240527
  2. ONDANSETRON [Suspect]
     Active Substance: ONDANSETRON
     Dosage: 8 MILLIGRAM, QD
     Route: 042
     Dates: start: 20240503, end: 20240505
  3. ETOPOSIDE [Suspect]
     Active Substance: ETOPOSIDE
     Indication: Hodgkin^s disease
     Dosage: 270 MILLIGRAM, QD
     Route: 042
     Dates: start: 20240503, end: 20240505
  4. ETOPOSIDE [Suspect]
     Active Substance: ETOPOSIDE
     Dosage: 270 MILLIGRAM, QD
     Route: 042
     Dates: start: 20240524, end: 20240526
  5. DEXAMETHASONE [Suspect]
     Active Substance: DEXAMETHASONE
     Indication: Hodgkin^s disease
     Dosage: 40 MILLIGRAM, QD
     Route: 048
     Dates: start: 20240503, end: 20240507
  6. DEXAMETHASONE [Suspect]
     Active Substance: DEXAMETHASONE
     Dosage: 40 MILLIGRAM, QD
     Route: 048
     Dates: start: 20240524, end: 20240528
  7. ADCETRIS [Suspect]
     Active Substance: BRENTUXIMAB VEDOTIN
     Indication: Hodgkin^s disease
     Dosage: 150 MILLIGRAM, TOTAL
     Route: 042
     Dates: start: 20240524, end: 20240524
  8. ADCETRIS [Suspect]
     Active Substance: BRENTUXIMAB VEDOTIN
     Dosage: 150 MILLIGRAM, TOTAL
     Route: 042
     Dates: start: 20240503, end: 20240503
  9. DACARBAZINE [Suspect]
     Active Substance: DACARBAZINE
     Indication: Hodgkin^s disease
     Dosage: 460 MILLIGRAM, QD
     Route: 042
     Dates: start: 20240504, end: 20240505
  10. DACARBAZINE [Suspect]
     Active Substance: DACARBAZINE
     Dosage: 465 MILLIGRAM, QD
     Route: 042
     Dates: start: 20240525, end: 20240526
  11. APREPITANT [Suspect]
     Active Substance: APREPITANT
     Indication: Prophylaxis of nausea and vomiting
     Dosage: 125 MILLIGRAM, QD
     Route: 048
     Dates: start: 20240503, end: 20240503
  12. APREPITANT [Suspect]
     Active Substance: APREPITANT
     Dosage: 80 MILLIGRAM, QD
     Route: 048
     Dates: start: 20240504, end: 20240505
  13. APREPITANT [Suspect]
     Active Substance: APREPITANT
     Dosage: 125 MILLIGRAM, QD
     Route: 048
     Dates: start: 20240524, end: 20240524
  14. APREPITANT [Suspect]
     Active Substance: APREPITANT
     Dosage: 80 MILLIGRAM, QD
     Route: 048
     Dates: start: 20240525, end: 20240526
  15. DOXORUBICIN [Suspect]
     Active Substance: DOXORUBICIN
     Indication: Hodgkin^s disease
     Dosage: 74 MILLIGRAM, TOTAL
     Route: 042
     Dates: start: 20240524, end: 20240524
  16. DOXORUBICIN [Suspect]
     Active Substance: DOXORUBICIN
     Dosage: 74 MILLIGRAM, TOTAL
     Route: 042
     Dates: start: 20240503, end: 20240503
  17. MESNA [Suspect]
     Active Substance: MESNA
     Indication: Prophylaxis
     Dosage: 2100 MILLIGRAM, TOTAL
     Route: 042
     Dates: start: 20240503, end: 20240503
  18. MESNA [Suspect]
     Active Substance: MESNA
     Dosage: 703.8 MILLIGRAM, TOTAL
     Route: 042
     Dates: start: 20240524, end: 20240524
  19. CYCLOPHOSPHAMIDE [Suspect]
     Active Substance: CYCLOPHOSPHAMIDE
     Indication: Hodgkin^s disease
     Dosage: 2300 MILLIGRAM, TOTAL
     Route: 042
     Dates: start: 20240524, end: 20240524
  20. CYCLOPHOSPHAMIDE [Suspect]
     Active Substance: CYCLOPHOSPHAMIDE
     Dosage: 2300 MILLIGRAM, TOTAL
     Route: 042
     Dates: start: 20240503, end: 20240503

REACTIONS (2)
  - Meningitis aseptic [Recovering/Resolving]
  - Acute polyneuropathy [Recovering/Resolving]

NARRATIVE: CASE EVENT DATE: 20240618
